FAERS Safety Report 11637281 (Version 4)
Quarter: 2016Q1

REPORT INFORMATION
  Report Type: Report from Study
  Country: US (occurrence: US)
  Receive Date: 20151016
  Receipt Date: 20160328
  Transmission Date: 20160525
  Serious: Yes (Other)
  Sender: FDA-Public Use
  Company Number: US-AMGEN-USASL2015106680

PATIENT
  Age: 44 Year
  Sex: Male

DRUGS (2)
  1. METHOTREXATE (METHOTREXATE SODIUM) [Concomitant]
     Active Substance: METHOTREXATE SODIUM
     Dosage: UNK
  2. ENBREL [Suspect]
     Active Substance: ETANERCEPT
     Indication: RHEUMATOID ARTHRITIS
     Dosage: 50 MG, QWK
     Route: 065
     Dates: start: 2007

REACTIONS (19)
  - Cardiac operation [Unknown]
  - Pain [Unknown]
  - Device malfunction [Unknown]
  - Wrong technique in product usage process [Unknown]
  - Injection site pain [Unknown]
  - Muscle strain [Unknown]
  - Visual impairment [Unknown]
  - Incorrect dose administered [Unknown]
  - Anaemia [Unknown]
  - Joint swelling [Unknown]
  - Injection site extravasation [Unknown]
  - Pericardial effusion [Unknown]
  - Malaise [Unknown]
  - White blood cell count decreased [Unknown]
  - Cough [Unknown]
  - Overweight [Unknown]
  - Arthropathy [Unknown]
  - Device issue [Unknown]
  - Staphylococcal infection [Unknown]

NARRATIVE: CASE EVENT DATE: 2011
